FAERS Safety Report 25887467 (Version 2)
Quarter: 2025Q4

REPORT INFORMATION
  Report Type: Report from Study
  Country: US (occurrence: US)
  Receive Date: 20251006
  Receipt Date: 20251120
  Transmission Date: 20260117
  Serious: Yes (Death, Hospitalization, Other)
  Sender: RECORDATI
  Company Number: US-ORPHANEU-2025006729

PATIENT
  Sex: Female
  Weight: 120.64 kg

DRUGS (16)
  1. ISTURISA [Suspect]
     Active Substance: OSILODROSTAT PHOSPHATE
     Indication: Pituitary-dependent Cushing^s syndrome
     Dosage: 2 MILLIGRAM, BID
     Route: 048
     Dates: start: 20250710, end: 2025
  2. ISTURISA [Suspect]
     Active Substance: OSILODROSTAT PHOSPHATE
     Indication: Cushing^s syndrome
     Dosage: 2 MILLIGRAM, BID
     Route: 048
     Dates: start: 2025
  3. ATORVASTATIN CALCIUM [Concomitant]
     Active Substance: ATORVASTATIN CALCIUM
     Indication: Product used for unknown indication
     Dosage: 10 MG EVERY DAY
     Route: 048
     Dates: start: 20200802
  4. FARXIGA [Concomitant]
     Active Substance: DAPAGLIFLOZIN PROPANEDIOL
     Indication: Product used for unknown indication
     Dosage: 10 MILLIGRAM, QD (10 MG TABLET)
     Route: 048
     Dates: start: 20241011
  5. FISH OIL [Concomitant]
     Active Substance: FISH OIL
     Indication: Product used for unknown indication
     Dosage: 1000 MG EVERY DAY (CONCENTRATE)
     Route: 048
     Dates: start: 20200802
  6. FUROSEMIDE [Concomitant]
     Active Substance: FUROSEMIDE
     Indication: Product used for unknown indication
     Dosage: 80 MG DAILY
     Route: 048
     Dates: start: 20200802
  7. LOSARTAN POTASSIUM [Concomitant]
     Active Substance: LOSARTAN POTASSIUM
     Indication: Product used for unknown indication
     Dosage: 50 MILLIGRAM, QD (50 MG TABLET) BED TIME
     Route: 048
     Dates: start: 20231025
  8. LYRICA [Concomitant]
     Active Substance: PREGABALIN
     Indication: Product used for unknown indication
     Dosage: 75 MILLIGRAM, PRN (75 MG CAPSULE) AS NEEDED
     Route: 048
     Dates: start: 20220603
  9. METFORMIN HYDROCHLORIDE [Concomitant]
     Active Substance: METFORMIN HYDROCHLORIDE
     Indication: Product used for unknown indication
     Dosage: 500 MILLIGRAM, QD (500 MG TABLET)
     Route: 048
     Dates: start: 20230424
  10. METOPROLOL SUCCINATE [Concomitant]
     Active Substance: METOPROLOL SUCCINATE
     Indication: Product used for unknown indication
     Dosage: 50 MILLIGRAM, BID (EXTENDED RELEASE TABLET)
     Route: 048
     Dates: start: 20220415
  11. POTASSIUM CHLORIDE EXTENDED RELEASE [Concomitant]
     Active Substance: POTASSIUM CHLORIDE
     Indication: Product used for unknown indication
     Dosage: 20 MEQ EVERY DAY
     Route: 048
     Dates: start: 20200802
  12. PROMETHAZINE HYDROCHLORIDE [Concomitant]
     Active Substance: PROMETHAZINE HYDROCHLORIDE
     Indication: Product used for unknown indication
     Dosage: 50 MILLIGRAM, QD (50 MG TABLET) HS
     Route: 048
     Dates: start: 20220214
  13. SUBOXONE [Concomitant]
     Active Substance: BUPRENORPHINE HYDROCHLORIDE\NALOXONE HYDROCHLORIDE
     Indication: Product used for unknown indication
     Dosage: 8-2 MG AS NEEDED
     Route: 060
     Dates: start: 20211004
  14. TRULICITY [Concomitant]
     Active Substance: DULAGLUTIDE
     Indication: Product used for unknown indication
     Dosage: 1.5 MG/0.5ML WEEKLY (SOLUTION AUTOINJECTOR)
     Route: 058
     Dates: start: 20250418
  15. VERAPAMIL HCL [Concomitant]
     Active Substance: VERAPAMIL HYDROCHLORIDE
     Indication: Product used for unknown indication
     Dosage: 120 MILLIGRAM, QD (120 MG TABLET)
     Route: 048
     Dates: start: 20250509
  16. XARELTO [Concomitant]
     Active Substance: RIVAROXABAN
     Indication: Product used for unknown indication
     Dosage: 20 MG EVERY DAY
     Route: 048
     Dates: start: 20211004

REACTIONS (5)
  - Death [Fatal]
  - Atrial fibrillation [Unknown]
  - Atrial fibrillation [Unknown]
  - Neuropathy peripheral [Not Recovered/Not Resolved]
  - Heart rate increased [Recovered/Resolved]

NARRATIVE: CASE EVENT DATE: 20250101
